FAERS Safety Report 4547238-0 (Version None)
Quarter: 2005Q1

REPORT INFORMATION
  Report Type: 
  Country: None (occurrence: None)
  Receive Date: 20050107
  Receipt Date: 20041229
  Transmission Date: 20050727
  Serious: Yes (Life-Threatening, Hospitalization)
  Sender: FDA-Public Use
  Company Number: JP-MERCK-0501USA00217

PATIENT
  Age: 78 Year
  Sex: Male

DRUGS (4)
  1. PEPCID [Suspect]
     Indication: UPPER GASTROINTESTINAL HAEMORRHAGE
     Route: 042
     Dates: start: 20041221, end: 20041225
  2. ERYTHROCIN [Suspect]
     Indication: PNEUMONIA
     Route: 042
     Dates: start: 20041220, end: 20041221
  3. MEROPENEM [Concomitant]
     Indication: PNEUMONIA
     Route: 042
     Dates: start: 20041220, end: 20041227
  4. ELASPOL [Concomitant]
     Route: 042
     Dates: start: 20041221, end: 20041228

REACTIONS (1)
  - VENTRICULAR TACHYCARDIA [None]
